FAERS Safety Report 13953522 (Version 1)
Quarter: 2017Q3

REPORT INFORMATION
  Report Type: Spontaneous
  Country: US (occurrence: None)
  Receive Date: 20170908
  Receipt Date: 20170908
  Transmission Date: 20171128
  Serious: Yes (Death)
  Sender: FDA-Public Use
  Company Number: None

PATIENT
  Age: 66 Year
  Sex: Female
  Weight: 97 kg

DRUGS (3)
  1. CARBOPLATIN. [Suspect]
     Active Substance: CARBOPLATIN
     Dates: end: 20141216
  2. BEVACIZUMAB (RHUMAB VEGF) [Suspect]
     Active Substance: BEVACIZUMAB
     Dates: end: 20150120
  3. TAXOL [Suspect]
     Active Substance: PACLITAXEL
     Dates: end: 20141216

REACTIONS (8)
  - Chronic obstructive pulmonary disease [None]
  - Metastases to meninges [None]
  - Disease progression [None]
  - Dyspnoea [None]
  - Muscular weakness [None]
  - Urinary retention [None]
  - Bronchial secretion retention [None]
  - Back pain [None]

NARRATIVE: CASE EVENT DATE: 20150216
